FAERS Safety Report 5510934-2 (Version None)
Quarter: 2007Q4

REPORT INFORMATION
  Report Type: 
  Country: None (occurrence: None)
  Receive Date: 20071106
  Receipt Date: 20071106
  Transmission Date: 20080405
  Serious: Yes (Hospitalization)
  Sender: FDA-Public Use
  Company Number: None

PATIENT
  Age: 47 Year
  Sex: Male
  Weight: 80.7403 kg

DRUGS (1)
  1. ZOLOFT [Suspect]

REACTIONS (2)
  - CONDITION AGGRAVATED [None]
  - DEPRESSION [None]
